FAERS Safety Report 17865633 (Version 3)
Quarter: 2020Q2

REPORT INFORMATION
  Report Type: Spontaneous
  Country: US (occurrence: US)
  Receive Date: 20200605
  Receipt Date: 20200610
  Transmission Date: 20200714
  Serious: Yes (Other)
  Sender: FDA-Public Use
  Company Number: US-PFIZER INC-2020219899

PATIENT
  Age: 90 Year
  Sex: Female
  Weight: 55.34 kg

DRUGS (1)
  1. CELEBREX [Suspect]
     Active Substance: CELECOXIB
     Indication: ARTHRITIS
     Dosage: 200 MG, 1X/DAY
     Route: 048

REACTIONS (4)
  - Compression fracture [Recovered/Resolved with Sequelae]
  - Dementia [Not Recovered/Not Resolved]
  - Body height decreased [Unknown]
  - Fall [Unknown]

NARRATIVE: CASE EVENT DATE: 2017
